FAERS Safety Report 6200153-9 (Version None)
Quarter: 2009Q2

REPORT INFORMATION
  Report Type: 
  Country: None (occurrence: None)
  Receive Date: 20090522
  Receipt Date: 20090406
  Transmission Date: 20091009
  Serious: Yes (Other)
  Sender: FDA-Public Use
  Company Number: US-JNJFOC-20090402209

PATIENT
  Sex: Male
  Weight: 79.38 kg

DRUGS (3)
  1. DURAGESIC-100 [Suspect]
     Indication: ARTHRALGIA
     Route: 062
  2. VALIUM [Concomitant]
     Indication: ANXIETY
     Route: 048
  3. TAGAMET [Concomitant]
     Dosage: AS NEEDED
     Route: 048

REACTIONS (7)
  - HYPERHIDROSIS [None]
  - INCORRECT DRUG ADMINISTRATION DURATION [None]
  - INTERVERTEBRAL DISC PROTRUSION [None]
  - NAUSEA [None]
  - PRODUCT QUALITY ISSUE [None]
  - THROMBOSIS [None]
  - WITHDRAWAL SYNDROME [None]
